FAERS Safety Report 5634991-8 (Version None)
Quarter: 2008Q1

REPORT INFORMATION
  Report Type: 
  Country: None (occurrence: None)
  Receive Date: 20080222
  Receipt Date: 20080207
  Transmission Date: 20080703
  Serious: Yes (Death)
  Sender: FDA-Public Use
  Company Number: FR-BAYER-200813306GPV

PATIENT

DRUGS (6)
  1. FLUDARABINE [Suspect]
     Indication: BONE MARROW CONDITIONING REGIMEN
     Route: 065
  2. BUSULFAN [Suspect]
     Indication: BONE MARROW CONDITIONING REGIMEN
     Route: 065
  3. ANTITHYMOCYTEGLOBULIN (ATG) [Suspect]
     Indication: BONE MARROW CONDITIONING REGIMEN
     Route: 065
  4. CYTARABINE [Suspect]
     Indication: ACUTE MYELOID LEUKAEMIA
  5. CYCLOSPORINE [Concomitant]
     Indication: PROPHYLAXIS AGAINST GRAFT VERSUS HOST DISEASE
     Route: 065
  6. CORTICOSTEROIDS [Concomitant]
     Indication: PROPHYLAXIS AGAINST GRAFT VERSUS HOST DISEASE

REACTIONS (1)
  - DRUG TOXICITY [None]
